FAERS Safety Report 4976799-2 (Version None)
Quarter: 2006Q2

REPORT INFORMATION
  Report Type: 
  Country: None (occurrence: None)
  Receive Date: 20060418
  Receipt Date: 20060418
  Transmission Date: 20061013
  Serious: Yes (Hospitalization)
  Sender: FDA-Public Use
  Company Number: None

PATIENT
  Age: 59 Year
  Sex: Male
  Weight: 66.6788 kg

DRUGS (5)
  1. FLUOROURACIL [Suspect]
     Indication: NEOPLASM MALIGNANT
     Dosage: 600MG/M2
     Dates: start: 20060403, end: 20060407
  2. TAXOTERE [Suspect]
     Indication: NEOPLASM MALIGNANT
     Dosage: TAXOTERE
     Dates: start: 20060403
  3. NACL [Concomitant]
  4. WATER [Concomitant]
  5. ISOUSOURCE [Concomitant]

REACTIONS (2)
  - DEHYDRATION [None]
  - HYPOVOLAEMIA [None]
